FAERS Safety Report 4337202-9 (Version None)
Quarter: 2004Q2

REPORT INFORMATION
  Report Type: 
  Country: None (occurrence: None)
  Receive Date: 20040412
  Receipt Date: 20040412
  Transmission Date: 20050107
  Serious: Yes (Other)
  Sender: FDA-Public Use
  Company Number: None

PATIENT
  Age: 88 Year
  Sex: Male
  Weight: 73 kg

DRUGS (2)
  1. GATIFLOXACIN [Suspect]
     Indication: UPPER RESPIRATORY TRACT INFECTION
     Dosage: 400 MG IV ONCE INTRAVEN
     Route: 042
     Dates: start: 20031216, end: 20031216
  2. GATIFLOXACIN [Concomitant]

REACTIONS (2)
  - ERYTHEMA [None]
  - RASH [None]
